FAERS Safety Report 4631572-X (Version None)
Quarter: 2005Q2

REPORT INFORMATION
  Report Type: 
  Country: None (occurrence: None)
  Receive Date: 20050407
  Receipt Date: 20050401
  Transmission Date: 20051028
  Serious: Yes (Hospitalization)
  Sender: FDA-Public Use
  Company Number: 2005052746

PATIENT
  Age: 71 Year
  Sex: Male

DRUGS (14)
  1. LIPITOR [Suspect]
     Indication: HYPERLIPIDAEMIA
     Dosage: 10 MG (1 IN 1 D), ORAL
     Route: 048
     Dates: end: 20050317
  2. BUFFERIN [Concomitant]
  3. BROTIZOLAM (BROTIZOLAM) [Concomitant]
  4. RANITIDINE [Concomitant]
  5. GLYBURIDE [Concomitant]
  6. OXYBUTYNIN CHLORIDE [Concomitant]
  7. ETODOLAC [Concomitant]
  8. VOGLIBOSE (VOGLIBOSE) [Concomitant]
  9. QUETIAPINE FURMARATE (QUETIAPINE FURMARATE) [Concomitant]
  10. IBUDILAST (IBUDILAST) [Concomitant]
  11. SARPOGRELATE HYDROCHLORIDE (SARPOGRELATE HYDROCHLORIDE) [Concomitant]
  12. LIMAPROST (LIMAPROST) [Concomitant]
  13. POLYCARBOPHIL CALCIUM (POLYCARBOPHIL CALCIUM) [Concomitant]
  14. RISEDRONATE SODIUM (RISEDRONATE SODIUM) [Concomitant]

REACTIONS (8)
  - ALANINE AMINOTRANSFERASE INCREASED [None]
  - ASPARTATE AMINOTRANSFERASE INCREASED [None]
  - BLOOD CREATINE INCREASED [None]
  - BLOOD CREATINE PHOSPHOKINASE INCREASED [None]
  - BLOOD LACTATE DEHYDROGENASE INCREASED [None]
  - DIZZINESS [None]
  - GAMMA-GLUTAMYLTRANSFERASE INCREASED [None]
  - LIVER DISORDER [None]
